FAERS Safety Report 11210638 (Version 1)
Quarter: 2015Q2

REPORT INFORMATION
  Report Type: Spontaneous
  Country: US (occurrence: US)
  Receive Date: 20150622
  Receipt Date: 20150622
  Transmission Date: 20150821
  Serious: Yes (Death, Other)
  Sender: FDA-Public Use
  Company Number: US-GLAXOSMITHKLINE-US2015GSK088139

PATIENT
  Sex: Male

DRUGS (15)
  1. JANUVIA [Concomitant]
     Active Substance: SITAGLIPTIN PHOSPHATE
  2. MORPHINE [Concomitant]
     Active Substance: MORPHINE
  3. METFORMIN [Concomitant]
     Active Substance: METFORMIN HYDROCHLORIDE
  4. KEPPRA [Concomitant]
     Active Substance: LEVETIRACETAM
  5. MEGACE [Concomitant]
     Active Substance: MEGESTROL ACETATE
  6. PHENERGAN [Concomitant]
     Active Substance: PROMETHAZINE HYDROCHLORIDE
  7. VOTRIENT [Suspect]
     Active Substance: PAZOPANIB HYDROCHLORIDE
     Indication: PRODUCT USED FOR UNKNOWN INDICATION
     Dosage: 400 MG, BID
     Route: 048
     Dates: start: 20150601
  8. OXYCODONE [Concomitant]
     Active Substance: OXYCODONE
  9. LEVOTHYROXINE [Concomitant]
     Active Substance: LEVOTHYROXINE
  10. REMERON [Concomitant]
     Active Substance: MIRTAZAPINE
  11. VENTOLIN [Concomitant]
     Active Substance: ALBUTEROL SULFATE
  12. TRAMADOL [Concomitant]
     Active Substance: TRAMADOL
  13. GLIMEPIRIDE. [Concomitant]
     Active Substance: GLIMEPIRIDE
  14. ATORVASTATIN [Concomitant]
     Active Substance: ATORVASTATIN
  15. LISINOPRIL. [Concomitant]
     Active Substance: LISINOPRIL

REACTIONS (1)
  - Death [Fatal]
